FAERS Safety Report 7305870-5 (Version None)
Quarter: 2011Q1

REPORT INFORMATION
  Report Type: 
  Country: None (occurrence: None)
  Receive Date: 20110210
  Receipt Date: 20110127
  Transmission Date: 20110831
  Serious: Yes (Hospitalization)
  Sender: FDA-Public Use
  Company Number: JPI-P-013746

PATIENT
  Age: 64 Year
  Sex: Male

DRUGS (12)
  1. XYREM [Suspect]
     Indication: NARCOLEPSY
     Dosage: 4.5 GM (2.25 GM, 2 IN 1 D), ORAL
     Route: 048
     Dates: start: 20070508, end: 20070620
  2. INDAPAMIDE [Concomitant]
  3. ACETYLSALICYLATE LYSINE [Concomitant]
  4. PAROXETINE [Concomitant]
  5. MODAFINIL [Concomitant]
  6. FORMOTEROL FUMARATE [Concomitant]
  7. IRBESARTAN [Concomitant]
  8. PRAVASTATIN [Concomitant]
  9. INSULIN [Concomitant]
  10. BENFLUOREX HYDROCHLORIDE [Concomitant]
  11. RAMIPRIL [Concomitant]
  12. FUROSEMIDE [Concomitant]

REACTIONS (1)
  - LEFT VENTRICULAR FAILURE [None]
